FAERS Safety Report 10619721 (Version 1)
Quarter: 2014Q4

REPORT INFORMATION
  Report Type: Spontaneous
  Country: JP (occurrence: JP)
  Receive Date: 20141202
  Receipt Date: 20141202
  Transmission Date: 20150529
  Serious: Yes (Death, Other)
  Sender: FDA-Public Use
  Company Number: JP-CELGENE-JPN-2014113581

PATIENT

DRUGS (2)
  1. VIDAZA [Suspect]
     Active Substance: AZACITIDINE
     Indication: MYELODYSPLASTIC SYNDROME
     Route: 065
     Dates: start: 201104, end: 201312
  2. VIDAZA [Suspect]
     Active Substance: AZACITIDINE
     Route: 065
     Dates: start: 201104, end: 201312

REACTIONS (11)
  - Sepsis [Fatal]
  - Gastric cancer [Fatal]
  - Cerebral haemorrhage [Fatal]
  - Neutropenia [Unknown]
  - Thrombocytopenia [Unknown]
  - Rash [Unknown]
  - Leukaemia [Fatal]
  - Febrile neutropenia [Unknown]
  - Pneumonia [Fatal]
  - Death [Fatal]
  - Gastrointestinal haemorrhage [Fatal]
